FAERS Safety Report 15058773 (Version 2)
Quarter: 2018Q3

REPORT INFORMATION
  Report Type: Spontaneous
  Country: FR (occurrence: FR)
  Receive Date: 20180625
  Receipt Date: 20180712
  Transmission Date: 20181010
  Serious: Yes (Other)
  Sender: FDA-Public Use
  Company Number: FR-ABBVIE-18K-056-2397984-00

PATIENT
  Age: 33 Year
  Sex: Female

DRUGS (1)
  1. HUMIRA [Suspect]
     Active Substance: ADALIMUMAB
     Indication: CROHN^S DISEASE
     Route: 058
     Dates: start: 201804, end: 20180621

REACTIONS (4)
  - Injection site oedema [Not Recovered/Not Resolved]
  - Injection site erythema [Unknown]
  - Injection site papule [Not Recovered/Not Resolved]
  - Papule [Not Recovered/Not Resolved]
